FAERS Safety Report 23676975 (Version 1)
Quarter: 2024Q1

REPORT INFORMATION
  Report Type: Spontaneous
  Country: IT (occurrence: IT)
  Receive Date: 20240327
  Receipt Date: 20240327
  Transmission Date: 20240409
  Serious: Yes (Hospitalization, Other)
  Sender: FDA-Public Use
  Company Number: IT-Accord-395341

PATIENT
  Age: 57 Year
  Sex: Female

DRUGS (7)
  1. CISPLATIN [Suspect]
     Active Substance: CISPLATIN
     Indication: Papillary thyroid cancer
  2. PEMETREXED [Suspect]
     Active Substance: PEMETREXED
     Indication: Papillary thyroid cancer
  3. ATEZOLIZUMAB [Concomitant]
     Active Substance: ATEZOLIZUMAB
     Indication: Lung adenocarcinoma
  4. CISPLATIN [Suspect]
     Active Substance: CISPLATIN
     Indication: Metastases to lung
     Dosage: 5 CYCLES
  5. PEMETREXED [Suspect]
     Active Substance: PEMETREXED
     Indication: Metastases to lung
     Dosage: 5 CYCLES
  6. CISPLATIN [Suspect]
     Active Substance: CISPLATIN
     Indication: Metastases to pleura
  7. PEMETREXED [Suspect]
     Active Substance: PEMETREXED
     Indication: Metastases to pleura

REACTIONS (3)
  - Drug ineffective for unapproved indication [Unknown]
  - Papillary thyroid cancer [Unknown]
  - Disease progression [Unknown]
